FAERS Safety Report 23853096 (Version 1)
Quarter: 2024Q2

REPORT INFORMATION
  Report Type: Report from Study
  Country: US (occurrence: US)
  Receive Date: 20240514
  Receipt Date: 20240514
  Transmission Date: 20240716
  Serious: Yes (Other)
  Sender: FDA-Public Use
  Company Number: US-AUROBINDO-AUR-APL-2024-022804

PATIENT

DRUGS (30)
  1. CAPECITABINE [Suspect]
     Active Substance: CAPECITABINE
     Indication: Colorectal cancer
     Dosage: UNK
     Route: 065
  2. CAPECITABINE [Suspect]
     Active Substance: CAPECITABINE
     Indication: Adenocarcinoma of appendix
  3. FLUOROURACIL [Suspect]
     Active Substance: FLUOROURACIL
     Indication: Colorectal cancer
     Dosage: UNK
     Route: 065
  4. FLUOROURACIL [Suspect]
     Active Substance: FLUOROURACIL
     Indication: Adenocarcinoma of appendix
  5. IRINOTECAN HYDROCHLORIDE [Suspect]
     Active Substance: IRINOTECAN HYDROCHLORIDE
     Indication: Colorectal cancer
     Dosage: UNK
     Route: 065
  6. IRINOTECAN HYDROCHLORIDE [Suspect]
     Active Substance: IRINOTECAN HYDROCHLORIDE
     Indication: Adenocarcinoma of appendix
  7. OXALIPLATIN [Suspect]
     Active Substance: OXALIPLATIN
     Indication: Colorectal cancer
     Dosage: UNK
     Route: 065
  8. OXALIPLATIN [Suspect]
     Active Substance: OXALIPLATIN
     Indication: Adenocarcinoma of appendix
  9. BEVACIZUMAB [Suspect]
     Active Substance: BEVACIZUMAB
     Indication: Colorectal cancer
     Dosage: UNK
     Route: 065
  10. BEVACIZUMAB [Suspect]
     Active Substance: BEVACIZUMAB
     Indication: Adenocarcinoma of appendix
  11. LEUCOVORIN [Suspect]
     Active Substance: LEUCOVORIN\LEUCOVORIN CALCIUM
     Indication: Colorectal cancer
     Dosage: UNK
     Route: 065
  12. LEUCOVORIN [Suspect]
     Active Substance: LEUCOVORIN\LEUCOVORIN CALCIUM
     Indication: Adenocarcinoma of appendix
  13. COBIMETINIB [Concomitant]
     Active Substance: COBIMETINIB
     Indication: Colorectal cancer
     Dosage: UNK
     Route: 065
  14. COBIMETINIB [Concomitant]
     Active Substance: COBIMETINIB
     Indication: Adenocarcinoma of appendix
  15. ATEZOLIZUMAB [Concomitant]
     Active Substance: ATEZOLIZUMAB
     Indication: Colorectal cancer
     Dosage: UNK
     Route: 065
  16. ATEZOLIZUMAB [Concomitant]
     Active Substance: ATEZOLIZUMAB
     Indication: Adenocarcinoma of appendix
  17. IPILIMUMAB [Concomitant]
     Active Substance: IPILIMUMAB
     Indication: Colorectal cancer
     Dosage: UNK
     Route: 065
  18. IPILIMUMAB [Concomitant]
     Active Substance: IPILIMUMAB
     Indication: Adenocarcinoma of appendix
  19. TRAMETINIB [Concomitant]
     Active Substance: TRAMETINIB
     Indication: Colorectal cancer
     Dosage: UNK
     Route: 065
  20. TRAMETINIB [Concomitant]
     Active Substance: TRAMETINIB
     Indication: Adenocarcinoma of appendix
  21. NIVOLUMAB [Concomitant]
     Active Substance: NIVOLUMAB
     Indication: Colorectal cancer
     Dosage: UNK
     Route: 065
  22. NIVOLUMAB [Concomitant]
     Active Substance: NIVOLUMAB
     Indication: Adenocarcinoma of appendix
  23. CETUXIMAB [Concomitant]
     Active Substance: CETUXIMAB
     Indication: Colorectal cancer
     Dosage: UNK
     Route: 065
  24. CETUXIMAB [Concomitant]
     Active Substance: CETUXIMAB
     Indication: Adenocarcinoma of appendix
  25. CISPLATIN [Concomitant]
     Active Substance: CISPLATIN
     Indication: Colorectal cancer
     Dosage: UNK
     Route: 065
  26. CISPLATIN [Concomitant]
     Active Substance: CISPLATIN
     Indication: Adenocarcinoma of appendix
  27. LONSURF [Concomitant]
     Active Substance: TIPIRACIL HYDROCHLORIDE\TRIFLURIDINE
     Indication: Colorectal cancer
     Dosage: UNK
     Route: 065
  28. LONSURF [Concomitant]
     Active Substance: TIPIRACIL HYDROCHLORIDE\TRIFLURIDINE
     Indication: Adenocarcinoma of appendix
  29. STIVARGA [Concomitant]
     Active Substance: REGORAFENIB\REGORAFENIB MONOHYDRATE
     Indication: Colorectal cancer
     Dosage: UNK
     Route: 065
  30. STIVARGA [Concomitant]
     Active Substance: REGORAFENIB\REGORAFENIB MONOHYDRATE
     Indication: Adenocarcinoma of appendix

REACTIONS (1)
  - Deep vein thrombosis [Unknown]
